FAERS Safety Report 7580488-8 (Version None)
Quarter: 2011Q2

REPORT INFORMATION
  Report Type: 
  Country: None (occurrence: None)
  Receive Date: 20110629
  Receipt Date: 20110608
  Transmission Date: 20111010
  Serious: Yes (Hospitalization, Congenital Anomaly)
  Sender: FDA-Public Use
  Company Number: A0930054A

PATIENT
  Sex: Male

DRUGS (2)
  1. PAXIL CR [Suspect]
     Route: 064
     Dates: start: 20030808
  2. PAXIL [Suspect]
     Indication: ANXIETY
     Route: 064

REACTIONS (5)
  - ARNOLD-CHIARI MALFORMATION [None]
  - CONGENITAL HYDROCEPHALUS [None]
  - CONVULSION [None]
  - DRUG EXPOSURE DURING PREGNANCY [None]
  - CONGENITAL AQUEDUCTAL STENOSIS [None]
